FAERS Safety Report 17993160 (Version 1)
Quarter: 2020Q3

REPORT INFORMATION
  Report Type: Report from Study
  Country: None (occurrence: BR)
  Receive Date: 20200707
  Receipt Date: 20200707
  Transmission Date: 20201103
  Serious: Yes (Other)
  Sender: FDA-Public Use
  Company Number: BR-ABBVIE-20K-020-3470859-00

PATIENT
  Age: 23 Year
  Sex: Female
  Weight: 78 kg

DRUGS (2)
  1. SYNTHROID [Concomitant]
     Active Substance: LEVOTHYROXINE SODIUM
     Indication: HYPOTHYROIDISM
  2. HUMIRA [Suspect]
     Active Substance: ADALIMUMAB
     Indication: JUVENILE IDIOPATHIC ARTHRITIS
     Route: 058
     Dates: start: 20200424

REACTIONS (2)
  - Pain [Recovering/Resolving]
  - Gallbladder disorder [Recovering/Resolving]

NARRATIVE: CASE EVENT DATE: 2020
